FAERS Safety Report 14552919 (Version 1)
Quarter: 2018Q1

REPORT INFORMATION
  Report Type: Spontaneous
  Country: US (occurrence: US)
  Receive Date: 20180220
  Receipt Date: 20180220
  Transmission Date: 20180509
  Serious: No
  Sender: FDA-Public Use
  Company Number: US-009507513-1802USA009359

PATIENT
  Age: 72 Year
  Sex: Female

DRUGS (1)
  1. BELSOMRA [Suspect]
     Active Substance: SUVOREXANT
     Indication: INSOMNIA
     Dosage: FIRST BELSOMRA 20 MG, 1 EVERY NIGHT
     Route: 048
     Dates: start: 20180216

REACTIONS (5)
  - Nightmare [Unknown]
  - Insomnia [Unknown]
  - Feeling abnormal [Unknown]
  - Poor quality sleep [Unknown]
  - Nervousness [Unknown]

NARRATIVE: CASE EVENT DATE: 20180216
